FAERS Safety Report 7111437-4 (Version None)
Quarter: 2010Q4

REPORT INFORMATION
  Report Type: 
  Country: None (occurrence: None)
  Receive Date: 20101118
  Receipt Date: 20100202
  Transmission Date: 20110411
  Serious: No
  Sender: FDA-Public Use
  Company Number: US-TEVA-220616USA

PATIENT
  Sex: Female

DRUGS (1)
  1. ALBUTEROL SULFATE AUTOHALER [Suspect]
     Indication: ASTHMA
     Dates: start: 20090101

REACTIONS (1)
  - DRUG INEFFECTIVE [None]
